FAERS Safety Report 5195267-9 (Version None)
Quarter: 2006Q4

REPORT INFORMATION
  Report Type: 
  Country: None (occurrence: None)
  Receive Date: 20061229
  Receipt Date: 20061123
  Transmission Date: 20070319
  Serious: No
  Sender: FDA-Public Use
  Company Number: FR-PFIZER INC-2006144691

PATIENT
  Sex: Female
  Weight: 78 kg

DRUGS (3)
  1. EPIRUBICIN HYDROCHLORIDE [Suspect]
     Indication: BREAST CANCER
     Route: 042
  2. CYCLOPHOSPHAMIDE [Suspect]
     Indication: BREAST CANCER
     Dosage: FREQ:DAILY
     Route: 042
     Dates: start: 20061024
  3. FLUOROURACIL [Suspect]
     Indication: BREAST CANCER
     Dosage: FREQ:DAILY
     Route: 042

REACTIONS (2)
  - ERYTHEMA [None]
  - PETECHIAE [None]
